FAERS Safety Report 13504007 (Version 1)
Quarter: 2017Q2

REPORT INFORMATION
  Report Type: Spontaneous
  Country: US (occurrence: US)
  Receive Date: 20170502
  Receipt Date: 20170502
  Transmission Date: 20170830
  Serious: Yes (Other)
  Sender: FDA-Public Use
  Company Number: US-TEVA-764365USA

PATIENT
  Sex: Female

DRUGS (4)
  1. BISACODYL. [Concomitant]
     Active Substance: BISACODYL
     Route: 058
  2. MODAFINIL. [Concomitant]
     Active Substance: MODAFINIL
  3. LEVOTHYROXINE. [Concomitant]
     Active Substance: LEVOTHYROXINE
  4. COPAXONE [Suspect]
     Active Substance: GLATIRAMER ACETATE
     Indication: MULTIPLE SCLEROSIS
     Route: 058
     Dates: start: 20140730

REACTIONS (2)
  - Pruritus [Unknown]
  - Intentional product misuse [Unknown]
